FAERS Safety Report 16140160 (Version 1)
Quarter: 2019Q2

REPORT INFORMATION
  Report Type: Spontaneous
  Country: US (occurrence: US)
  Receive Date: 20190401
  Receipt Date: 20190401
  Transmission Date: 20190711
  Serious: No
  Sender: FDA-Public Use
  Company Number: US-AMGEN-USASP2019048071

PATIENT

DRUGS (1)
  1. PROLIA [Suspect]
     Active Substance: DENOSUMAB
     Indication: PRODUCT USED FOR UNKNOWN INDICATION
     Dosage: UNK
     Route: 065

REACTIONS (6)
  - Abscess [Recovered/Resolved]
  - Breast mass [Recovered/Resolved]
  - Hyperhidrosis [Recovered/Resolved]
  - Scar [Not Recovered/Not Resolved]
  - Chest discomfort [Recovered/Resolved]
  - Skin disorder [Recovered/Resolved]
